FAERS Safety Report 17105119 (Version 1)
Quarter: 2019Q4

REPORT INFORMATION
  Report Type: Spontaneous
  Country: US (occurrence: US)
  Receive Date: 20191203
  Receipt Date: 20191203
  Transmission Date: 20200122
  Serious: Yes (Other)
  Sender: FDA-Public Use
  Company Number: US-PURACAP PHARMACEUTICAL LLC-2019EPC00344

PATIENT
  Age: 22 Year
  Sex: Female

DRUGS (3)
  1. UNSPECIFIED BLUEBERRY EXTRACT [Concomitant]
     Route: 065
  2. DOXYCYCLINE HYCLATE. [Suspect]
     Active Substance: DOXYCYCLINE HYCLATE
     Indication: ACNE
     Dosage: 100 MG, 1X/DAY
     Route: 065
  3. UNSPECIFIED PROBIOTIC [Concomitant]
     Dosage: UNK UNK, 1X/DAY
     Route: 065

REACTIONS (1)
  - Autoimmune hepatitis [Recovered/Resolved]
